FAERS Safety Report 6716333-X (Version None)
Quarter: 2010Q2

REPORT INFORMATION
  Report Type: 
  Country: None (occurrence: None)
  Receive Date: 20100507
  Receipt Date: 20100424
  Transmission Date: 20101027
  Serious: Yes (Death)
  Sender: FDA-Public Use
  Company Number: US-PFIZER INC-2010051865

PATIENT
  Sex: Male
  Weight: 101.36 kg

DRUGS (12)
  1. CELECOXIB [Suspect]
     Indication: OSTEOARTHRITIS
     Dosage: 100 MG, 2X/DAY
     Route: 048
     Dates: start: 20080809, end: 20100312
  2. NEXIUM [Concomitant]
     Indication: PROPHYLAXIS
     Dosage: 20 MG, 1X/DAY
     Route: 048
     Dates: start: 20080809
  3. VYTORIN [Concomitant]
     Indication: DYSLIPIDAEMIA
     Dosage: 1 TAB, QD
     Route: 048
     Dates: start: 20040101
  4. ALTACE [Concomitant]
     Indication: HYPERTENSION
     Dosage: 10 MG, 2X/DAY
     Route: 048
     Dates: start: 19960101
  5. ULTRAM [Concomitant]
     Indication: OSTEOARTHRITIS
     Dosage: 1 TAB, PRN
     Route: 048
     Dates: start: 20040101
  6. COREG [Concomitant]
     Indication: HYPERTENSION
     Dosage: 25 MG, 2X/DAY
     Route: 048
     Dates: start: 20040101
  7. NOVOLIN [Concomitant]
     Indication: TYPE 1 DIABETES MELLITUS
     Dosage: 1 ML, 2X/DAY
     Route: 030
     Dates: start: 20090602
  8. HYDRALAZINE [Concomitant]
     Indication: HYPERTENSION
     Dosage: 25 MG, 2X/DAY
     Route: 048
     Dates: start: 20090807
  9. VALSARTAN [Concomitant]
     Indication: HYPERTENSION
     Dosage: 160 MG, 1X/DAY
     Route: 048
     Dates: start: 20090825
  10. HYDROCHLOROTHIAZIDE [Concomitant]
     Indication: HYPERTENSION
     Dosage: 25 MG, 2X/DAY
     Route: 048
     Dates: start: 20100201
  11. LASIX [Concomitant]
     Indication: OEDEMA PERIPHERAL
     Dosage: 20 MG, 2X/DAY
     Route: 048
     Dates: start: 20100201
  12. ACETYLSALICYLIC ACID [Concomitant]
     Indication: CARDIOVASCULAR EVENT PROPHYLAXIS
     Dosage: 325 MG, 1X/DAY
     Route: 048
     Dates: start: 20030101

REACTIONS (1)
  - HYPERTROPHIC CARDIOMYOPATHY [None]
